FAERS Safety Report 15245725 (Version 1)
Quarter: 2018Q3

REPORT INFORMATION
  Report Type: Spontaneous
  Country: US (occurrence: US)
  Receive Date: 20180713
  Receipt Date: 20180713
  Transmission Date: 20181010
  Serious: Yes (Hospitalization, Other)
  Sender: FDA-Public Use
  Company Number: None

PATIENT
  Age: 5 Day
  Sex: Male

DRUGS (2)
  1. CLINDAMYCIN. [Suspect]
     Active Substance: CLINDAMYCIN
     Indication: DENTAL CARE
     Route: 048
     Dates: start: 20180618, end: 20180628
  2. CLINDAMYCIN 300MG [Concomitant]
     Active Substance: CLINDAMYCIN PHOSPHATE
     Dates: start: 20180618, end: 20180628

REACTIONS (3)
  - Frequent bowel movements [None]
  - Abnormal faeces [None]
  - Colitis [None]

NARRATIVE: CASE EVENT DATE: 20180713
